FAERS Safety Report 8084957-6 (Version None)
Quarter: 2012Q1

REPORT INFORMATION
  Report Type: 
  Country: None (occurrence: None)
  Receive Date: 20120128
  Receipt Date: 20110330
  Transmission Date: 20120608
  Serious: No
  Sender: FDA-Public Use
  Company Number: US-ABBOTT-11P-163-0715575-00

PATIENT
  Sex: Female
  Weight: 49.94 kg

DRUGS (6)
  1. HUMIRA [Suspect]
     Dates: start: 20110326, end: 20110326
  2. HUMIRA [Suspect]
  3. ASCORBIC ACID [Concomitant]
     Indication: VITAMIN SUPPLEMENTATION
  4. IMURAN [Concomitant]
     Indication: CROHN'S DISEASE
  5. HUMIRA [Suspect]
     Indication: CROHN'S DISEASE
     Dates: start: 20110325, end: 20110325
  6. PREDNISONE TAB [Concomitant]
     Indication: CROHN'S DISEASE

REACTIONS (7)
  - OROPHARYNGEAL PAIN [None]
  - PAIN [None]
  - INJECTION SITE PAIN [None]
  - WEIGHT DECREASED [None]
  - DIARRHOEA [None]
  - NASAL CONGESTION [None]
  - PYREXIA [None]
